FAERS Safety Report 7230578-4 (Version None)
Quarter: 2011Q1

REPORT INFORMATION
  Report Type: 
  Country: None (occurrence: None)
  Receive Date: 20110118
  Receipt Date: 20110110
  Transmission Date: 20110831
  Serious: Yes (Life-Threatening, Other)
  Sender: FDA-Public Use
  Company Number: PHHY2011US02851

PATIENT
  Sex: Female

DRUGS (1)
  1. RECLAST [Suspect]
     Dosage: ONCE YEARLY
     Dates: start: 20101224

REACTIONS (6)
  - HEADACHE [None]
  - MYALGIA [None]
  - FEELING ABNORMAL [None]
  - BONE PAIN [None]
  - NECK PAIN [None]
  - FATIGUE [None]
